FAERS Safety Report 7813625-8 (Version None)
Quarter: 2011Q4

REPORT INFORMATION
  Report Type: 
  Country: None (occurrence: None)
  Receive Date: 20111014
  Receipt Date: 20111004
  Transmission Date: 20120403
  Serious: Yes (Other)
  Sender: FDA-Public Use
  Company Number: NL-AMGEN-NLDSP2011045453

PATIENT
  Age: 64 Year
  Sex: Female

DRUGS (10)
  1. SUCRALFATE [Concomitant]
     Dosage: UNK
  2. IMODIUM [Concomitant]
     Dosage: UNK
  3. TRAMADOL HCL [Concomitant]
     Dosage: UNK
  4. PANTOPRAZOL                        /01263202/ [Concomitant]
  5. LEVOTHYROXINE SODIUM [Concomitant]
     Dosage: UNK
  6. PANTOPRAZOL                        /01263202/ [Concomitant]
     Dosage: UNK
  7. SIMVASTATIN [Concomitant]
     Dosage: UNK
  8. DICLOFENAC [Concomitant]
     Dosage: UNK
  9. MICARDIS [Concomitant]
     Dosage: UNK
  10. ENBREL [Suspect]
     Indication: RHEUMATOID ARTHRITIS
     Dosage: 50 MG, WEEKLY
     Dates: start: 20061001

REACTIONS (12)
  - FALL [None]
  - SYNCOPE [None]
  - ANORECTAL DISCOMFORT [None]
  - NASAL DRYNESS [None]
  - DRY MOUTH [None]
  - HYPERSOMNIA [None]
  - DIARRHOEA [None]
  - DRY EYE [None]
  - MUSCULOSKELETAL DISCOMFORT [None]
  - VULVOVAGINAL DRYNESS [None]
  - ALOPECIA [None]
  - ECZEMA [None]
